FAERS Safety Report 5646675-0 (Version None)
Quarter: 2008Q1

REPORT INFORMATION
  Report Type: 
  Country: None (occurrence: None)
  Receive Date: 20080303
  Receipt Date: 20080226
  Transmission Date: 20080703
  Serious: Yes (Life-Threatening, Hospitalization)
  Sender: FDA-Public Use
  Company Number: PHHO2008VE02346

PATIENT
  Age: 21 Year
  Sex: Female
  Weight: 108 kg

DRUGS (6)
  1. CYTARABINE [Concomitant]
  2. IDARUBICIN HCL [Concomitant]
  3. ALBUMIN (HUMAN) [Concomitant]
  4. FILGRASTIM [Concomitant]
  5. PREDNISONE TAB [Concomitant]
  6. AMN107 [Suspect]
     Indication: CHRONIC MYELOID LEUKAEMIA
     Dosage: 800 MG, QD
     Route: 048
     Dates: start: 20080131, end: 20080206

REACTIONS (7)
  - BLOOD ALBUMIN DECREASED [None]
  - BLOOD CREATININE INCREASED [None]
  - BLOOD UREA INCREASED [None]
  - GLOMERULAR FILTRATION RATE DECREASED [None]
  - NEPHROTIC SYNDROME [None]
  - OEDEMA [None]
  - WEIGHT INCREASED [None]
